FAERS Safety Report 7797588-X (Version None)
Quarter: 2011Q4

REPORT INFORMATION
  Report Type: 
  Country: None (occurrence: None)
  Receive Date: 20111005
  Receipt Date: 20110920
  Transmission Date: 20120403
  Serious: No
  Sender: FDA-Public Use
  Company Number: AU-JNJFOC-20110807294

PATIENT
  Age: 55 Year
  Sex: Male

DRUGS (5)
  1. HYDROMORPHONE HCL [Suspect]
     Indication: PAIN
     Route: 048
  2. HYDROMORPHONE HCL [Suspect]
     Route: 048
  3. DURAGESIC-100 [Suspect]
     Indication: PRODUCT USED FOR UNKNOWN INDICATION
     Route: 062
  4. HYDROMORPHONE HCL [Suspect]
     Route: 048
  5. HYDROMORPHONE HCL [Suspect]
     Route: 048

REACTIONS (4)
  - SWELLING FACE [None]
  - BREAKTHROUGH PAIN [None]
  - PRODUCT ADHESION ISSUE [None]
  - WRONG TECHNIQUE IN DRUG USAGE PROCESS [None]
